FAERS Safety Report 7758570-1 (Version None)
Quarter: 2011Q3

REPORT INFORMATION
  Report Type: 
  Country: None (occurrence: None)
  Receive Date: 20110919
  Receipt Date: 20110905
  Transmission Date: 20111222
  Serious: Yes (Hospitalization, Other)
  Sender: FDA-Public Use
  Company Number: TR-ELI_LILLY_AND_COMPANY-TR201109001942

PATIENT

DRUGS (1)
  1. ATOMOXETINE HCL [Suspect]

REACTIONS (1)
  - ACUTE HEPATIC FAILURE [None]
